FAERS Safety Report 7837800 (Version 3)
Quarter: 2013Q1

REPORT INFORMATION
  Report Type: Spontaneous
  Country: US (occurrence: US)
  Receive Date: 20110302
  Receipt Date: 20130118
  Transmission Date: 20140127
  Serious: Yes (Hospitalization, Other)
  Sender: FDA-Public Use
  Company Number: US-PFIZER INC-2010085409

PATIENT
  Age: 70 Year
  Sex: Female

DRUGS (4)
  1. DILANTIN [Suspect]
     Indication: CONVULSION
     Dosage: 100 MG, 2X/DAY
     Route: 048
     Dates: start: 20080628, end: 20080815
  2. TYLENOL WITH CODEINE [Concomitant]
     Dosage: TWO CAPSULES DAILY
     Route: 048
     Dates: start: 20080623
  3. ATENOLOL [Concomitant]
     Dosage: 50 MG, UNK
     Route: 048
     Dates: start: 20080628
  4. LISINOPRIL [Concomitant]
     Dosage: 5 MG, UNK
     Route: 048
     Dates: start: 20080628

REACTIONS (1)
  - Stevens-Johnson syndrome [Unknown]
